FAERS Safety Report 13573292 (Version 3)
Quarter: 2017Q2

REPORT INFORMATION
  Report Type: Spontaneous
  Country: IT (occurrence: IT)
  Receive Date: 20170523
  Receipt Date: 20170608
  Transmission Date: 20170830
  Serious: Yes (Other)
  Sender: FDA-Public Use
  Company Number: IT-PFIZER INC-2017221023

PATIENT
  Age: 32 Year
  Sex: Male
  Weight: 104 kg

DRUGS (2)
  1. OXALIPLATIN. [Suspect]
     Active Substance: OXALIPLATIN
     Indication: ADENOCARCINOMA OF COLON
     Dosage: 200 MG, CYCLIC
     Route: 042
     Dates: start: 20170220, end: 20170313
  2. CAPECITABINE. [Concomitant]
     Active Substance: CAPECITABINE
     Indication: ADENOCARCINOMA OF COLON
     Dosage: 7 DF, UNK
     Route: 048
     Dates: start: 20170220

REACTIONS (1)
  - Infusion related reaction [Recovering/Resolving]

NARRATIVE: CASE EVENT DATE: 20170313
